FAERS Safety Report 17446282 (Version 1)
Quarter: 2020Q1

REPORT INFORMATION
  Report Type: Spontaneous
  Country: US (occurrence: US)
  Receive Date: 20200221
  Receipt Date: 20200221
  Transmission Date: 20200409
  Serious: Yes (Hospitalization)
  Sender: FDA-Public Use
  Company Number: US-VERTEX PHARMACEUTICALS-2020-003113

PATIENT
  Age: 20 Year
  Sex: Female

DRUGS (1)
  1. TRIKAFTA [Suspect]
     Active Substance: ELEXACAFTOR\IVACAFTOR\TEZACAFTOR
     Indication: CYSTIC FIBROSIS
     Dosage: 100 MG ELEXA, 50 MG TEZA, 75 MG IVA AM AND 150 MG IVA PM
     Route: 048
     Dates: start: 201912

REACTIONS (1)
  - Influenza [Unknown]

NARRATIVE: CASE EVENT DATE: 202001
